FAERS Safety Report 7986202-6 (Version None)
Quarter: 2011Q4

REPORT INFORMATION
  Report Type: 
  Country: None (occurrence: None)
  Receive Date: 20111216
  Receipt Date: 20111214
  Transmission Date: 20120403
  Serious: Yes (Life-Threatening, Hospitalization, Disabling, Other)
  Sender: FDA-Public Use
  Company Number: US-GLAXOSMITHKLINE-A0958165A

PATIENT
  Age: 43 Year
  Sex: Female

DRUGS (2)
  1. DEPAKOTE [Suspect]
     Indication: PRODUCT USED FOR UNKNOWN INDICATION
  2. LAMICTAL [Suspect]
     Indication: PARTIAL SEIZURES
     Route: 048
     Dates: start: 19990101

REACTIONS (3)
  - RASH [None]
  - SKIN DISCOLOURATION [None]
  - HEPATIC FAILURE [None]
